FAERS Safety Report 22267943 (Version 3)
Quarter: 2023Q2

REPORT INFORMATION
  Report Type: Report from Study
  Country: US (occurrence: US)
  Receive Date: 20230430
  Receipt Date: 20230605
  Transmission Date: 20230722
  Serious: No
  Sender: FDA-Public Use
  Company Number: US-002147023-NVSC2023US097871

PATIENT
  Sex: Female

DRUGS (1)
  1. KISQALI [Suspect]
     Active Substance: RIBOCICLIB
     Indication: Product used for unknown indication
     Dosage: 1 DOSAGE FORM, TID (1 PILL 3 TIMES PER DAY)
     Route: 048
     Dates: start: 20230327

REACTIONS (4)
  - Liver disorder [Unknown]
  - Hepatic enzyme increased [Unknown]
  - Nausea [Unknown]
  - Inappropriate schedule of product administration [Unknown]
